FAERS Safety Report 17549403 (Version 2)
Quarter: 2020Q2

REPORT INFORMATION
  Report Type: Spontaneous
  Country: US (occurrence: US)
  Receive Date: 20200317
  Receipt Date: 20200408
  Transmission Date: 20200713
  Serious: No
  Sender: FDA-Public Use
  Company Number: US-MYLANLABS-2020M1026387

PATIENT
  Sex: Male

DRUGS (2)
  1. LIDOCAINE PATCH [Suspect]
     Active Substance: LIDOCAINE
     Indication: NECK PAIN
  2. LIDOCAINE PATCH [Suspect]
     Active Substance: LIDOCAINE
     Indication: PAIN
     Dosage: 12 HOURS ON/24 HOUR PERIOD
     Route: 003

REACTIONS (4)
  - Drug ineffective for unapproved indication [Unknown]
  - Expired product administered [Unknown]
  - Product adhesion issue [Unknown]
  - Wrong technique in product usage process [Unknown]
